FAERS Safety Report 7579737-1 (Version None)
Quarter: 2011Q2

REPORT INFORMATION
  Report Type: 
  Country: None (occurrence: None)
  Receive Date: 20110629
  Receipt Date: 20110615
  Transmission Date: 20111010
  Serious: Yes (Other)
  Sender: FDA-Public Use
  Company Number: US-JNJFOC-20110607575

PATIENT
  Sex: Female
  Weight: 87.09 kg

DRUGS (2)
  1. ONE-A-DAY MULTIVITAMINS [Concomitant]
     Indication: VITAMIN SUPPLEMENTATION
     Route: 048
  2. REMICADE [Suspect]
     Indication: CROHN'S DISEASE
     Route: 042
     Dates: start: 20090101

REACTIONS (10)
  - DYSPHAGIA [None]
  - GASTRIC DISORDER [None]
  - TYPE 2 DIABETES MELLITUS [None]
  - BLOOD CHOLESTEROL INCREASED [None]
  - HYPERTENSION [None]
  - OROPHARYNGEAL PAIN [None]
  - NASOPHARYNGITIS [None]
  - EATING DISORDER [None]
  - DEPRESSION [None]
  - BLOOD IRON DECREASED [None]
